FAERS Safety Report 13519697 (Version 3)
Quarter: 2017Q3

REPORT INFORMATION
  Report Type: Spontaneous
  Country: US (occurrence: US)
  Receive Date: 20170505
  Receipt Date: 20170807
  Transmission Date: 20171127
  Serious: No
  Sender: FDA-Public Use
  Company Number: PHEH2017US013529

PATIENT
  Sex: Female
  Weight: 50.79 kg

DRUGS (1)
  1. ZOFRAN [Suspect]
     Active Substance: ONDANSETRON HYDROCHLORIDE
     Indication: VOMITING IN PREGNANCY
     Dosage: 1 DF, UNK
     Route: 048
     Dates: start: 20011219, end: 20011219

REACTIONS (6)
  - Injury [Unknown]
  - Product use in unapproved indication [Unknown]
  - Amenorrhoea [Unknown]
  - Dysfunctional uterine bleeding [Unknown]
  - Maternal exposure during pregnancy [Unknown]
  - Emotional distress [Unknown]
